FAERS Safety Report 10246108 (Version 1)
Quarter: 2014Q2

REPORT INFORMATION
  Report Type: Spontaneous
  Country: US (occurrence: FR)
  Receive Date: 20140619
  Receipt Date: 20140619
  Transmission Date: 20141212
  Serious: Yes (Other)
  Sender: FDA-Public Use
  Company Number: 2014SP003253

PATIENT
  Age: 63 Year
  Sex: Male
  Weight: 80 kg

DRUGS (21)
  1. FLUOROURACIL [Suspect]
     Indication: COLON CANCER METASTATIC
     Route: 042
     Dates: start: 20140304, end: 20140304
  2. FLUOROURACIL [Suspect]
     Indication: COLON CANCER METASTATIC
     Route: 042
     Dates: start: 20140318, end: 20140318
  3. FLUOROURACIL [Suspect]
     Indication: COLON CANCER METASTATIC
     Route: 042
     Dates: start: 20140401, end: 20140401
  4. IRINOTECAN HCL [Suspect]
     Indication: COLON CANCER METASTATIC
     Route: 042
     Dates: start: 20140304, end: 20140304
  5. IRINOTECAN HCL [Suspect]
     Indication: COLON CANCER METASTATIC
     Route: 042
     Dates: start: 20140318, end: 20140318
  6. IRINOTECAN HCL [Suspect]
     Indication: COLON CANCER METASTATIC
     Route: 042
     Dates: start: 20140401, end: 20140401
  7. AFLIBERCEPT [Suspect]
     Indication: COLON CANCER METASTATIC
     Route: 042
     Dates: start: 20140304, end: 20140304
  8. AFLIBERCEPT [Suspect]
     Indication: COLON CANCER METASTATIC
     Route: 042
     Dates: start: 20140318, end: 20140318
  9. AFLIBERCEPT [Suspect]
     Indication: COLON CANCER METASTATIC
     Route: 042
     Dates: start: 20140401, end: 20140401
  10. GLICLAZIDE [Concomitant]
     Route: 048
     Dates: start: 20140403
  11. FUROSEMIDE [Concomitant]
     Route: 048
     Dates: start: 20140403
  12. ACTISKENAN [Concomitant]
     Route: 048
     Dates: start: 20140403
  13. MORPHINE SULFATE [Concomitant]
     Route: 048
     Dates: start: 20140403
  14. ATORVASTATIN CALCIUM [Concomitant]
     Route: 048
     Dates: start: 20140403
  15. LIRAGLUTIDE [Concomitant]
     Route: 058
     Dates: start: 20140403
  16. NATISPRAY [Concomitant]
     Route: 055
     Dates: start: 20140403
  17. BISOPROLOL FUMARATE [Concomitant]
     Route: 048
     Dates: start: 20140403
  18. METFORMIN HYDROCHLORIDE [Concomitant]
     Route: 048
     Dates: start: 20140403
  19. ACETYLSALICYLATE LYSINE [Concomitant]
     Route: 048
     Dates: start: 20140403
  20. RAMIPRIL [Concomitant]
     Route: 048
     Dates: start: 20140403
  21. FOLINIC ACID [Concomitant]
     Indication: COLON CANCER METASTATIC
     Dates: start: 20140401, end: 20140401

REACTIONS (5)
  - Cardiac failure [Not Recovered/Not Resolved]
  - Necrosis [Not Recovered/Not Resolved]
  - Dyspnoea [Unknown]
  - Oedema peripheral [Unknown]
  - Cardiomyopathy [Not Recovered/Not Resolved]
